FAERS Safety Report 15615824 (Version 1)
Quarter: 2018Q4

REPORT INFORMATION
  Report Type: Spontaneous
  Country: ES (occurrence: ES)
  Receive Date: 20181114
  Receipt Date: 20181114
  Transmission Date: 20190205
  Serious: Yes (Hospitalization, Other)
  Sender: FDA-Public Use
  Company Number: ES-AUROBINDO-AUR-APL-2018-054829

PATIENT
  Age: 72 Year
  Sex: Male

DRUGS (3)
  1. ATORVASTATINA                      /01326101/ [Concomitant]
     Active Substance: ATORVASTATIN
     Indication: CARDIOVASCULAR EVENT PROPHYLAXIS
     Dosage: 80 MILLIGRAM, DAILY
     Route: 048
     Dates: start: 20180801
  2. LOSARTAN. [Suspect]
     Active Substance: LOSARTAN
     Indication: HYPERTENSION
     Dosage: 50 MILLIGRAM, DAILY
     Route: 048
     Dates: start: 20180801, end: 20180827
  3. BRILIQUE [Suspect]
     Active Substance: TICAGRELOR
     Indication: ACUTE MYOCARDIAL INFARCTION
     Dosage: 90 MILLIGRAM, DAILY
     Route: 048
     Dates: start: 20180801, end: 20180831

REACTIONS (2)
  - Mixed liver injury [Recovering/Resolving]
  - Coagulopathy [Recovered/Resolved]

NARRATIVE: CASE EVENT DATE: 20180824
